FAERS Safety Report 11090657 (Version 2)
Quarter: 2015Q2

REPORT INFORMATION
  Report Type: Spontaneous
  Country: IT (occurrence: IT)
  Receive Date: 20150505
  Receipt Date: 20150511
  Transmission Date: 20150821
  Serious: Yes (Hospitalization)
  Sender: FDA-Public Use
  Company Number: IT-JNJFOC-20150112067

PATIENT
  Age: 9 Year
  Sex: Male

DRUGS (7)
  1. PARACETAMOL [Interacting]
     Active Substance: ACETAMINOPHEN
     Indication: INFLUENZA
     Route: 065
  2. DEXAMETHASONE. [Interacting]
     Active Substance: DEXAMETHASONE
     Indication: INFLUENZA
     Route: 065
  3. DOMPERIDONE [Interacting]
     Active Substance: DOMPERIDONE
     Indication: INFLUENZA
     Route: 065
  4. METOCLOPRAMIDE. [Interacting]
     Active Substance: METOCLOPRAMIDE
     Indication: INFLUENZA
     Route: 065
  5. BUTAMIRATE CITRATE [Interacting]
     Active Substance: BUTAMIRATE CITRATE
     Indication: INFLUENZA
     Route: 065
  6. RISPERDAL [Suspect]
     Active Substance: RISPERIDONE
     Indication: DISTURBANCE IN SOCIAL BEHAVIOUR
     Route: 048
     Dates: start: 20140928, end: 20150110
  7. IBUPROFENE [Interacting]
     Active Substance: IBUPROFEN
     Indication: INFLUENZA
     Route: 065

REACTIONS (3)
  - Drug interaction [Recovered/Resolved]
  - Sinus bradycardia [Recovered/Resolved]
  - Off label use [Unknown]

NARRATIVE: CASE EVENT DATE: 20150118
